FAERS Safety Report 23074861 (Version 1)
Quarter: 2023Q4

REPORT INFORMATION
  Report Type: Report from Study
  Country: US (occurrence: US)
  Receive Date: 20231017
  Receipt Date: 20231017
  Transmission Date: 20240109
  Serious: Yes (Other)
  Sender: FDA-Public Use
  Company Number: US-002147023-NVSC2023US222107

PATIENT
  Sex: Female

DRUGS (1)
  1. KESIMPTA [Suspect]
     Active Substance: OFATUMUMAB
     Indication: Multiple sclerosis
     Dosage: 20 MG/0.4 ML INJECT 1 PEN MONTHLY STARTING AT WEEK 4 AS DIRECTED
     Route: 058

REACTIONS (3)
  - Multiple sclerosis [Unknown]
  - Disease progression [Unknown]
  - Therapeutic response decreased [Unknown]
